FAERS Safety Report 16654332 (Version 1)
Quarter: 2019Q3

REPORT INFORMATION
  Report Type: Spontaneous
  Country: US (occurrence: US)
  Receive Date: 20190731
  Receipt Date: 20190731
  Transmission Date: 20191004
  Serious: No
  Sender: FDA-Public Use
  Company Number: US-009507513-1907USA016703

PATIENT
  Sex: Female

DRUGS (1)
  1. GANIRELIX ACETATE INJECTION [Suspect]
     Active Substance: GANIRELIX ACETATE

REACTIONS (2)
  - Needle issue [Unknown]
  - No adverse event [Unknown]

NARRATIVE: CASE EVENT DATE: 20190730
